FAERS Safety Report 6717727-9 (Version None)
Quarter: 2010Q2

REPORT INFORMATION
  Report Type: 
  Country: None (occurrence: None)
  Receive Date: 20100510
  Receipt Date: 20100428
  Transmission Date: 20101027
  Serious: Yes (Other)
  Sender: FDA-Public Use
  Company Number: US-PFIZER INC-2010025563

PATIENT
  Sex: Male
  Weight: 70.295 kg

DRUGS (27)
  1. CHANTIX [Suspect]
     Indication: SMOKING CESSATION THERAPY
     Dosage: 0.5 MG, 1X/DAY
     Route: 048
     Dates: start: 20091101, end: 20091101
  2. CHANTIX [Suspect]
     Dosage: UNK
     Dates: start: 20091101, end: 20091101
  3. CHANTIX [Suspect]
     Dosage: UNK
     Dates: start: 20091103
  4. PLAVIX [Concomitant]
     Indication: CARDIAC DISORDER
     Dosage: 75 MG, 1X/DAY
     Route: 048
     Dates: start: 20091030
  5. IMDUR [Concomitant]
     Indication: CARDIAC DISORDER
     Dosage: 60 MG, 1X/DAY
     Route: 048
     Dates: start: 20091030
  6. CYMBALTA [Concomitant]
     Indication: DEPRESSION
     Dosage: 60 MG, 1X/DAY
     Route: 048
  7. CYMBALTA [Concomitant]
     Dosage: UNK
     Route: 048
     Dates: start: 20050101
  8. LISINOPRIL [Concomitant]
     Indication: CARDIAC DISORDER
     Dosage: 10 MG, 2X/DAY
     Route: 048
  9. LISINOPRIL [Concomitant]
     Indication: HYPERTENSION
     Dosage: UNK
     Route: 048
     Dates: start: 20050101
  10. AMLODIPINE BESILATE [Concomitant]
     Indication: CARDIAC DISORDER
     Dosage: 10 MG, 1X/DAY
     Route: 048
  11. AMLODIPINE BESILATE [Concomitant]
     Indication: HYPERTENSION
     Dosage: UNK
     Route: 048
     Dates: start: 20050101
  12. SIMVASTATIN [Concomitant]
     Indication: BLOOD CHOLESTEROL ABNORMAL
     Dosage: 40 MG, 1X/DAY
     Route: 048
  13. SIMVASTATIN [Concomitant]
     Dosage: UNK
     Dates: start: 20050101
  14. TEMAZEPAM [Concomitant]
     Indication: INSOMNIA
     Dosage: 30 MG, 1X/DAY
     Route: 048
  15. TEMAZEPAM [Concomitant]
     Dosage: UNK
     Route: 048
     Dates: start: 20050101
  16. RANITIDINE HYDROCHLORIDE [Concomitant]
     Indication: GASTROOESOPHAGEAL REFLUX DISEASE
     Dosage: 150 MG, 1X/DAY
     Route: 048
     Dates: start: 20050101
  17. LORTAB [Concomitant]
     Indication: PAIN
     Dosage: [HYDROCODONE BITARTRATE 750] / [PARACETAMOL 500], UNITS UNPROVIDED, AS NEEDED
  18. LORTAB [Concomitant]
     Indication: NEURALGIA
  19. DETROL LA [Concomitant]
     Indication: HYPERTONIC BLADDER
     Dosage: 4 MG, 1X/DAY
     Route: 048
     Dates: start: 20081001
  20. FERROUS GLUCONATE [Concomitant]
     Indication: PROPHYLAXIS
     Dosage: 324 MG, 3X/DAY
     Route: 048
  21. FERROUS GLUCONATE [Concomitant]
     Dosage: UNK
     Dates: start: 20050101
  22. RANITIDINE [Concomitant]
     Indication: PROPHYLAXIS
  23. TYLENOL (CAPLET) [Concomitant]
     Indication: PAIN
     Dosage: UNK
  24. TRAMADOL [Concomitant]
     Indication: PAIN
     Dosage: 50 MG AS NEEDED
     Dates: start: 20090730
  25. GLUCOSAMINE SULFATE [Concomitant]
     Dosage: 1000 MG, 2X/DAY
  26. VITAMIN E [Concomitant]
     Dosage: 400 IU DAILY
  27. VITAMIN C [Concomitant]
     Dosage: 500 MG DAILY

REACTIONS (2)
  - ANAEMIA [None]
  - MYOCARDIAL INFARCTION [None]
